APPROVED DRUG PRODUCT: IRBESARTAN
Active Ingredient: IRBESARTAN
Strength: 300MG
Dosage Form/Route: TABLET;ORAL
Application: A219539 | Product #003 | TE Code: AB
Applicant: MSN LABORATORIES PRIVATE LTD
Approved: Nov 4, 2025 | RLD: No | RS: No | Type: RX